FAERS Safety Report 6575937-8 (Version None)
Quarter: 2010Q1

REPORT INFORMATION
  Report Type: 
  Country: None (occurrence: None)
  Receive Date: 20100209
  Receipt Date: 20100127
  Transmission Date: 20100710
  Serious: Yes (Hospitalization)
  Sender: FDA-Public Use
  Company Number: US-ELI_LILLY_AND_COMPANY-US201001003362

PATIENT
  Sex: Female

DRUGS (11)
  1. FORTEO [Suspect]
     Indication: OSTEOPOROSIS
     Dosage: UNK, DAILY (1/D)
     Dates: start: 20090801
  2. SYNTHROID [Concomitant]
  3. OXYBUTIN [Concomitant]
  4. DICLOFEN [Concomitant]
  5. SIMVASTATIN [Concomitant]
  6. VALIUM [Concomitant]
  7. DARVOCET [Concomitant]
  8. MULTI-VITAMIN [Concomitant]
  9. MINERALS NOS [Concomitant]
  10. CALCIUM [Concomitant]
  11. VITAMIN D [Concomitant]

REACTIONS (3)
  - CONTUSION [None]
  - HEART RATE DECREASED [None]
  - HYPOAESTHESIA [None]
